FAERS Safety Report 21532655 (Version 1)
Quarter: 2022Q4

REPORT INFORMATION
  Report Type: Spontaneous
  Country: PT (occurrence: PT)
  Receive Date: 20221101
  Receipt Date: 20221101
  Transmission Date: 20230113
  Serious: Yes (Hospitalization, Other)
  Sender: FDA-Public Use
  Company Number: PT-AMGEN-PRTSP2022184969

PATIENT
  Age: 63 Year
  Sex: Male

DRUGS (4)
  1. CARFILZOMIB [Suspect]
     Active Substance: CARFILZOMIB
     Indication: Plasma cell myeloma
     Dosage: 120 MILLIGRAM, QWK
     Route: 065
     Dates: start: 202105
  2. ESOMEPRAZOLE [Concomitant]
     Active Substance: ESOMEPRAZOLE
     Dosage: 40 MILLIGRAM
     Route: 065
     Dates: start: 202105
  3. ACYCLOVIR [Concomitant]
     Active Substance: ACYCLOVIR
     Dosage: 400 MILLIGRAM
     Route: 065
     Dates: start: 202105
  4. TAPENTADOL [Concomitant]
     Active Substance: TAPENTADOL
     Dosage: 50 MILLIGRAM
     Route: 065
     Dates: start: 202105

REACTIONS (3)
  - Electrocardiogram ST segment elevation [Recovering/Resolving]
  - Prinzmetal angina [Recovering/Resolving]
  - Chest pain [Recovering/Resolving]
